FAERS Safety Report 5321097-0 (Version None)
Quarter: 2007Q2

REPORT INFORMATION
  Report Type: 
  Country: None (occurrence: None)
  Receive Date: 20070504
  Receipt Date: 20070419
  Transmission Date: 20071010
  Serious: Yes (Hospitalization)
  Sender: FDA-Public Use
  Company Number: 012702

PATIENT
  Age: 43 Year
  Sex: Female
  Weight: 83.9 kg

DRUGS (18)
  1. LESSINA(LEVONORGESTREL, ETHINYLESTRADIOL) TABLET, 0.1/0.02MG [Suspect]
     Indication: ORAL CONTRACEPTION
     Dosage: 1 TABLET, QD, ORAL
     Route: 048
     Dates: start: 20061001
  2. PREDNISONE TAB [Concomitant]
  3. ADVAIR DISKUS 100/50 [Concomitant]
  4. VOLMAX [Concomitant]
  5. ACIPHEX [Concomitant]
  6. CYMBALTA [Concomitant]
  7. MAXZIDE [Concomitant]
  8. KLOR-CON [Concomitant]
  9. TRAZODONE HCL [Concomitant]
  10. PERCOCET [Concomitant]
  11. SYNTHROID [Concomitant]
  12. BECONASE AQUA (BECLOMETASONE DIPROPIONATE) [Concomitant]
  13. XANAX [Concomitant]
  14. ZELNORM [Concomitant]
  15. AMBIEN [Concomitant]
  16. APIDRA INSULIN [Concomitant]
  17. XOPENEX [Concomitant]
  18. IRON (IRON) [Concomitant]

REACTIONS (8)
  - DYSPNOEA [None]
  - LUNG ABSCESS [None]
  - MENSTRUATION IRREGULAR [None]
  - PAIN [None]
  - PNEUMONIA [None]
  - PNEUMOTHORAX [None]
  - PULMONARY EMBOLISM [None]
  - STAPHYLOCOCCAL INFECTION [None]
